FAERS Safety Report 8904621 (Version 3)
Quarter: 2013Q4

REPORT INFORMATION
  Report Type: Spontaneous
  Country: FR (occurrence: FR)
  Receive Date: 20121113
  Receipt Date: 20131212
  Transmission Date: 20140711
  Serious: Yes (Hospitalization, Other)
  Sender: FDA-Public Use
  Company Number: FR-MERCK-1211FRA004287

PATIENT
  Age: 67 Year
  Sex: Female

DRUGS (4)
  1. MK-0683 [Suspect]
     Indication: MYCOSIS FUNGOIDES
     Dosage: 400 MG, QD
     Dates: start: 201101, end: 201107
  2. MK-0683 [Suspect]
     Dosage: 300 MG, 5 X PER WEEK
     Route: 048
     Dates: start: 201107, end: 201112
  3. MK-0683 [Suspect]
     Dosage: 300 UNK, QD
     Route: 048
     Dates: start: 201112, end: 20131105
  4. LEVOTHYROX [Concomitant]
     Route: 048

REACTIONS (1)
  - Renal failure [Recovered/Resolved]
